FAERS Safety Report 6379882-2 (Version None)
Quarter: 2009Q3

REPORT INFORMATION
  Report Type: 
  Country: None (occurrence: None)
  Receive Date: 20090928
  Receipt Date: 20090915
  Transmission Date: 20100115
  Serious: Yes (Hospitalization, Other)
  Sender: FDA-Public Use
  Company Number: PHEH2009US10354

PATIENT
  Sex: Female
  Weight: 64.399 kg

DRUGS (17)
  1. EXJADE [Suspect]
     Indication: HAEMOCHROMATOSIS
     Dosage: 1250 MG DAILY
     Route: 048
     Dates: start: 20090731, end: 20090811
  2. EPOETIN NOS [Concomitant]
  3. ONDANSETRON HYDROCHLORIDE [Concomitant]
  4. ASPIRIN [Concomitant]
     Dosage: 81 MG DAILY
     Route: 048
  5. FLEXERIL [Concomitant]
     Dosage: UNK
     Route: 048
  6. FOLIC ACID [Suspect]
     Dosage: 1 MG, QD
     Route: 048
  7. FUROSEMIDE [Concomitant]
     Dosage: 1/2 40 MG DAILY
     Route: 048
  8. MINERAL OIL [Concomitant]
     Dosage: UNK
  9. MURO 128 [Concomitant]
     Dosage: 1 DROP DAILY
  10. TEARS NATURALE [Concomitant]
  11. NITROGLYCERIN [Concomitant]
     Dosage: 0.4 MG PRN
     Route: 060
  12. POTASSIUM CHLORIDE [Concomitant]
     Dosage: 20 MEQ DAILY
     Route: 048
  13. REFRESH PM [Concomitant]
     Dosage: UNK
  14. TETRACYCLINE [Concomitant]
     Dosage: 500 MG TWICE DAILY
  15. TOPROL-XL [Concomitant]
     Dosage: 50 MG DAILY
     Route: 048
  16. TRAVATAN [Concomitant]
     Dosage: .0004 MG DAILY
  17. ZYRTEC [Concomitant]
     Dosage: UNK
     Route: 048

REACTIONS (12)
  - ABDOMINAL OPERATION [None]
  - ABDOMINAL PAIN [None]
  - ADHESIOLYSIS [None]
  - ANAEMIA [None]
  - CONSTIPATION [None]
  - HAEMOGLOBIN DECREASED [None]
  - HUMERUS FRACTURE [None]
  - MALNUTRITION [None]
  - NAUSEA [None]
  - SMALL INTESTINAL OBSTRUCTION [None]
  - SPLENECTOMY [None]
  - VOMITING [None]
